FAERS Safety Report 4459039-2 (Version None)
Quarter: 2004Q3

REPORT INFORMATION
  Report Type: 
  Country: None (occurrence: None)
  Receive Date: 20040927
  Receipt Date: 20040915
  Transmission Date: 20050211
  Serious: Yes (Hospitalization)
  Sender: FDA-Public Use
  Company Number: GB-JNJFOC-20040904745

PATIENT
  Sex: Male

DRUGS (14)
  1. REMICADE [Suspect]
     Indication: RHEUMATOID ARTHRITIS
     Route: 042
  2. VITAMIN B COMPLEX CAP [Concomitant]
     Route: 065
  3. BENZYDAMINE [Concomitant]
     Route: 065
  4. CO-CARELDOPA [Concomitant]
     Route: 065
  5. CO-CARELDOPA [Concomitant]
     Route: 065
  6. ADCAL [Concomitant]
     Route: 065
  7. THIAMINE [Concomitant]
     Route: 065
  8. LANSOPRAZOLE [Concomitant]
     Route: 065
  9. PREDNISOLONE [Concomitant]
     Route: 065
  10. RISEDRONATE [Concomitant]
     Route: 065
  11. PARACETAMOL [Concomitant]
     Route: 065
  12. CARMELLOSE [Concomitant]
     Route: 065
  13. METHOTREXATE [Concomitant]
     Route: 065
  14. FOLIC ACID [Concomitant]
     Route: 065

REACTIONS (3)
  - GENERAL PHYSICAL HEALTH DETERIORATION [None]
  - HERPES ZOSTER [None]
  - PNEUMONIA [None]
